FAERS Safety Report 20380758 (Version 1)
Quarter: 2022Q1

REPORT INFORMATION
  Report Type: Spontaneous
  Country: AU (occurrence: AU)
  Receive Date: 20220127
  Receipt Date: 20220127
  Transmission Date: 20220424
  Serious: Yes (Other)
  Sender: FDA-Public Use
  Company Number: AU-BoehringerIngelheim-2022-BI-150254

PATIENT
  Age: 9 Year
  Sex: Male

DRUGS (1)
  1. CLONIDINE [Suspect]
     Active Substance: CLONIDINE
     Indication: Product used for unknown indication
     Route: 048
     Dates: start: 20220114, end: 20220120

REACTIONS (2)
  - Hallucination [Unknown]
  - Visual impairment [Unknown]

NARRATIVE: CASE EVENT DATE: 20220114
